FAERS Safety Report 8449918-3 (Version None)
Quarter: 2012Q2

REPORT INFORMATION
  Report Type: 
  Country: None (occurrence: None)
  Receive Date: 20120620
  Receipt Date: 20120615
  Transmission Date: 20120825
  Serious: Yes (Hospitalization, Other)
  Sender: FDA-Public Use
  Company Number: PHHO2012AT006009

PATIENT
  Sex: Female

DRUGS (3)
  1. TEMODAL [Concomitant]
     Dosage: 140 MG, UNK
     Route: 048
     Dates: start: 20120501
  2. LETROZOLE [Suspect]
     Indication: BREAST CANCER
     Dosage: 2.5 MG, QD
     Route: 048
     Dates: start: 20110318, end: 20111108
  3. ZOMETA [Concomitant]
     Dosage: 2 MG, UNK
     Route: 042
     Dates: end: 20070614

REACTIONS (3)
  - FALL [None]
  - NEOPLASM MALIGNANT [None]
  - GLIOBLASTOMA [None]
